FAERS Safety Report 5492860-0 (Version None)
Quarter: 2007Q4

REPORT INFORMATION
  Report Type: 
  Country: None (occurrence: None)
  Receive Date: 20071019
  Receipt Date: 20071010
  Transmission Date: 20080405
  Serious: Yes (Hospitalization)
  Sender: FDA-Public Use
  Company Number: 022-20785-07100263

PATIENT
  Age: 56 Year
  Sex: Female

DRUGS (2)
  1. THALOMID [Suspect]
     Indication: MULTIPLE MYELOMA
     Dosage: 400 MG, 8 IN 1 D, ORAL, ORAL
     Route: 048
     Dates: start: 20070911, end: 20071002
  2. THALOMID [Suspect]
     Indication: MULTIPLE MYELOMA
     Dosage: 400 MG, 8 IN 1 D, ORAL, ORAL
     Route: 048
     Dates: start: 20071008, end: 20071009

REACTIONS (2)
  - ASTHMA [None]
  - BRONCHOSPASM [None]
